FAERS Safety Report 7926599-6 (Version None)
Quarter: 2011Q4

REPORT INFORMATION
  Report Type: 
  Country: None (occurrence: None)
  Receive Date: 20111118
  Receipt Date: 20091013
  Transmission Date: 20120403
  Serious: No
  Sender: FDA-Public Use
  Company Number: 2009BI032984

PATIENT
  Sex: Male

DRUGS (3)
  1. TYSABRI [Suspect]
     Indication: MULTIPLE SCLEROSIS
     Route: 042
     Dates: start: 20070329, end: 20091123
  2. BLOOD PRESSURE MEDICATION [NOS] [Concomitant]
     Indication: HYPOTENSION
  3. TYSABRI [Suspect]
     Route: 042
     Dates: start: 20110802

REACTIONS (11)
  - FALL [None]
  - STRESS [None]
  - MUSCULOSKELETAL DISORDER [None]
  - LIMB INJURY [None]
  - GAIT DISTURBANCE [None]
  - HYPOTENSION [None]
  - BLOOD PRESSURE DECREASED [None]
  - DEPRESSION [None]
  - ANXIETY [None]
  - BALANCE DISORDER [None]
  - FATIGUE [None]
